FAERS Safety Report 17043936 (Version 4)
Quarter: 2020Q4

REPORT INFORMATION
  Report Type: Spontaneous
  Country: US (occurrence: US)
  Receive Date: 20191118
  Receipt Date: 20201026
  Transmission Date: 20210113
  Serious: No
  Sender: FDA-Public Use
  Company Number: US-TARO-2019TAR00761

PATIENT
  Sex: Female
  Weight: 58.96 kg

DRUGS (9)
  1. CLOTRIMAZOLE 1% CREAM [Suspect]
     Active Substance: CLOTRIMAZOLE
     Indication: SPOROTRICHOSIS
     Dosage: UNK
     Route: 061
  2. LOTRIMIN SPRAY (MICONAZOLE) [Suspect]
     Active Substance: MICONAZOLE
     Dosage: UNK
     Route: 061
  3. UNSPECIFIED TOPICAL PRODUCTS [Suspect]
     Active Substance: UNSPECIFIED INGREDIENT
     Dosage: UNK
  4. UNSPECIFIED TOPICAL PRODUCTS [Suspect]
     Active Substance: UNSPECIFIED INGREDIENT
     Dosage: UNK
  5. CLOTRIMAZOLE CREAM 1% (OTC) [Suspect]
     Active Substance: CLOTRIMAZOLE
     Indication: SPOROTRICHOSIS
     Dosage: UNK
     Route: 061
     Dates: start: 2007
  6. CLOTRIMAZOLE 1% CREAM [Suspect]
     Active Substance: CLOTRIMAZOLE
     Dosage: UNK
     Route: 061
  7. LOTRIMIN SPRAY (MICONAZOLE) [Suspect]
     Active Substance: MICONAZOLE
     Indication: SPOROTRICHOSIS
     Dosage: UNK
     Route: 061
  8. CLOTRIMAZOLE SPRAY [Suspect]
     Active Substance: CLOTRIMAZOLE
     Dosage: UNK
     Route: 061
  9. CLOTRIMAZOLE SPRAY [Suspect]
     Active Substance: CLOTRIMAZOLE
     Indication: SPOROTRICHOSIS
     Dosage: UNK
     Route: 061

REACTIONS (12)
  - Tinea infection [Unknown]
  - Tinea pedis [Unknown]
  - Papule [Unknown]
  - Skin exfoliation [Not Recovered/Not Resolved]
  - Erythema [Not Recovered/Not Resolved]
  - Skin fissures [Unknown]
  - Incorrect product administration duration [Not Recovered/Not Resolved]
  - Application site pain [Not Recovered/Not Resolved]
  - Dyspnoea [Unknown]
  - Discomfort [Not Recovered/Not Resolved]
  - Drug ineffective for unapproved indication [Unknown]
  - Product quality issue [Unknown]
